FAERS Safety Report 24345904 (Version 1)
Quarter: 2024Q3

REPORT INFORMATION
  Report Type: Spontaneous
  Country: US (occurrence: US)
  Receive Date: 20240920
  Receipt Date: 20240920
  Transmission Date: 20241017
  Serious: Yes (Other)
  Sender: MERCK
  Company Number: US-009507513-2409USA006278

PATIENT
  Sex: Male

DRUGS (2)
  1. KEYTRUDA [Suspect]
     Active Substance: PEMBROLIZUMAB
     Indication: Renal cell carcinoma
     Route: 042
  2. LENVATINIB MESYLATE [Suspect]
     Active Substance: LENVATINIB MESYLATE
     Indication: Renal cell carcinoma
     Route: 048

REACTIONS (6)
  - Malignant neoplasm progression [Unknown]
  - Headache [Unknown]
  - Photophobia [Unknown]
  - Nausea [Unknown]
  - Hot flush [Unknown]
  - Hand-foot-and-mouth disease [Unknown]

NARRATIVE: CASE EVENT DATE: 20240101
